FAERS Safety Report 16515556 (Version 1)
Quarter: 2019Q3

REPORT INFORMATION
  Report Type: Spontaneous
  Country: US (occurrence: US)
  Receive Date: 20190522
  Receipt Date: 20190522
  Transmission Date: 20191004
  Serious: Yes (Other)
  Sender: FDA-Public Use
  Company Number: None

PATIENT
  Age: 50 Year
  Sex: Female
  Weight: 58.51 kg

DRUGS (1)
  1. AIMOVIG [Suspect]
     Active Substance: ERENUMAB-AOOE
     Indication: MIGRAINE
     Dosage: ?          OTHER FREQUENCY:1X-28 DAYS;?
     Route: 058
     Dates: start: 201810, end: 201904

REACTIONS (5)
  - Nausea [None]
  - Constipation [None]
  - Hypoaesthesia [None]
  - Joint swelling [None]
  - Paraesthesia [None]

NARRATIVE: CASE EVENT DATE: 20190401
